FAERS Safety Report 7521809-1 (Version None)
Quarter: 2011Q2

REPORT INFORMATION
  Report Type: 
  Country: None (occurrence: None)
  Receive Date: 20110603
  Receipt Date: 20080228
  Transmission Date: 20111010
  Serious: Yes (Death, Life-Threatening, Hospitalization)
  Sender: FDA-Public Use
  Company Number: US-BAYER-200815623NA

PATIENT
  Age: 63 Year
  Sex: Male
  Weight: 116 kg

DRUGS (23)
  1. AMIODARONE HCL [Concomitant]
     Dosage: 200 MG, UNK
     Route: 048
  2. ACCUPRIL [Concomitant]
     Dosage: 5 MG, UNK
     Route: 048
  3. VERSED [Concomitant]
     Dosage: 5 MG, UNK
     Route: 042
     Dates: start: 20011128, end: 20011128
  4. COUMADIN [Concomitant]
     Route: 048
  5. HEPARIN [Concomitant]
     Dosage: 54.000 U, UNK
     Route: 042
     Dates: start: 20011128, end: 20011128
  6. NITROGLYCERIN [Concomitant]
     Dosage: UNK
     Route: 042
     Dates: start: 20011128, end: 20011128
  7. PLASMA [Concomitant]
     Dosage: 4 U, UNK
     Route: 042
     Dates: start: 20011128
  8. LEVOPHED [Concomitant]
     Dosage: UNK
     Route: 042
     Dates: start: 20011128
  9. TRASYLOL [Suspect]
     Dosage: 200ML, INFUSION AT 50 CC/HR
     Route: 042
     Dates: start: 20011128, end: 20011128
  10. PREVACID [Concomitant]
     Dosage: 30 MG, UNK
     Route: 048
  11. DOBUTAMINE HYDROCHLORIDE [Concomitant]
     Dosage: 3MCG/KG/MIN
     Route: 042
     Dates: start: 20011128
  12. RED BLOOD CELLS [Concomitant]
     Dosage: 5 U, UNK
     Route: 042
     Dates: start: 20011128
  13. HESPAN IN EXCEL PLASTIC CONTAINER [Concomitant]
     Dosage: 300 CC
     Route: 042
     Dates: start: 20011128
  14. ALBUMIN (HUMAN) [Concomitant]
     Dosage: 50 G, UNK
     Route: 042
     Dates: start: 20011128
  15. COREG [Concomitant]
     Dosage: 3.25 MG, BID
     Route: 048
  16. IMDUR [Concomitant]
     Route: 048
  17. BUMEX [Concomitant]
     Dosage: UNK
     Route: 042
     Dates: start: 20011128, end: 20011128
  18. PLATELETS [Concomitant]
     Dosage: 10 U, UNK
     Route: 042
     Dates: start: 20011128
  19. TRASYLOL [Suspect]
     Indication: CORONARY ARTERY BYPASS
     Dosage: 200 ML, PUMP PRIME, TEST DOSE
     Route: 042
     Dates: start: 20011128, end: 20011128
  20. GLYBURIDE [Concomitant]
     Route: 048
  21. ANCEF [Concomitant]
     Dosage: 2 G, UNK
     Route: 042
     Dates: start: 20011128, end: 20011128
  22. LASIX [Concomitant]
     Dosage: 40 MG, UNK
     Route: 042
     Dates: start: 20011128, end: 20011128
  23. GLUCOPHAGE [Concomitant]
     Dosage: 500 MG, UNK
     Route: 048

REACTIONS (6)
  - FEAR OF DEATH [None]
  - DEPRESSION [None]
  - NERVOUSNESS [None]
  - INJURY [None]
  - POSTOPERATIVE RENAL FAILURE [None]
  - EMOTIONAL DISTRESS [None]
